FAERS Safety Report 18149784 (Version 2)
Quarter: 2020Q3

REPORT INFORMATION
  Report Type: Spontaneous
  Country: US (occurrence: US)
  Receive Date: 20200814
  Receipt Date: 20200917
  Transmission Date: 20201103
  Serious: Yes (Life-Threatening, Other)
  Sender: FDA-Public Use
  Company Number: US-CHIESI-2020CHF03687

PATIENT
  Sex: Female
  Weight: 49 kg

DRUGS (2)
  1. FERRIPROX [Suspect]
     Active Substance: DEFERIPRONE
     Indication: HAEMOCHROMATOSIS
     Dosage: 71 MILLIGRAM/KILOGRAM, QD
     Route: 048
     Dates: start: 20200501, end: 2020
  2. FERRIPROX [Suspect]
     Active Substance: DEFERIPRONE
     Indication: THALASSAEMIA
     Dosage: 71 MILLIGRAM/KILOGRAM, QD
     Route: 048
     Dates: start: 20120107, end: 201208

REACTIONS (1)
  - Agranulocytosis [Recovered/Resolved]
